FAERS Safety Report 5421252-5 (Version None)
Quarter: 2007Q3

REPORT INFORMATION
  Report Type: 
  Country: None (occurrence: None)
  Receive Date: 20070719
  Receipt Date: 20061027
  Transmission Date: 20080115
  Serious: Yes (Other)
  Sender: FDA-Public Use
  Company Number: OMPQ-PR-0610S-1478

PATIENT
  Sex: Female

DRUGS (1)
  1. OMNIPAQUE 140 [Suspect]
     Indication: DRUG USE FOR UNKNOWN INDICATION
     Dosage: NR, SINGLE DOSE, I.V.
     Route: 042
     Dates: start: 20061026, end: 20061026

REACTIONS (1)
  - DYSPNOEA [None]
